FAERS Safety Report 13917226 (Version 1)
Quarter: 2017Q3

REPORT INFORMATION
  Report Type: Spontaneous
  Country: US (occurrence: US)
  Receive Date: 20170829
  Receipt Date: 20170829
  Transmission Date: 20171127
  Serious: No
  Sender: FDA-Public Use
  Company Number: US-ALLERGAN-1723514US

PATIENT
  Sex: Female

DRUGS (1)
  1. SAPHRIS [Suspect]
     Active Substance: ASENAPINE MALEATE
     Indication: MOOD ALTERED
     Dosage: 15 MG, QPM
     Route: 048
     Dates: start: 2015, end: 201612

REACTIONS (8)
  - Drug dose omission [Unknown]
  - Stomatitis [Unknown]
  - Tongue haemorrhage [Unknown]
  - Off label use [Unknown]
  - Oral pain [Not Recovered/Not Resolved]
  - Tongue disorder [Unknown]
  - Glossodynia [Unknown]
  - Tongue exfoliation [Unknown]

NARRATIVE: CASE EVENT DATE: 2016
